FAERS Safety Report 5645283-5 (Version None)
Quarter: 2008Q1

REPORT INFORMATION
  Report Type: 
  Country: None (occurrence: None)
  Receive Date: 20080229
  Receipt Date: 20080219
  Transmission Date: 20080703
  Serious: Yes (Other)
  Sender: FDA-Public Use
  Company Number: JP-ROCHE-537454

PATIENT
  Age: 40 Year
  Sex: Female
  Weight: 77 kg

DRUGS (4)
  1. TAMIFLU [Suspect]
     Route: 048
     Dates: start: 20071210, end: 20071210
  2. PL [Suspect]
     Indication: DRUG USE FOR UNKNOWN INDICATION
     Dosage: DRUG: PL (NON-PYRINE COLD PREPARATION)
     Route: 048
     Dates: start: 20071210, end: 20071210
  3. COCARL [Suspect]
     Indication: PYREXIA
     Route: 048
     Dates: start: 20071210, end: 20071210
  4. MARZULENE [Suspect]
     Dosage: DOSE FORM: ORAL FORMULATION (NOT OTHERWISE SPECIFIED)
     Route: 048

REACTIONS (1)
  - LOSS OF CONSCIOUSNESS [None]
